FAERS Safety Report 14383794 (Version 1)
Quarter: 2018Q1

REPORT INFORMATION
  Report Type: Spontaneous
  Country: US (occurrence: US)
  Receive Date: 20180115
  Receipt Date: 20180115
  Transmission Date: 20180509
  Serious: No
  Sender: FDA-Public Use
  Company Number: US-BAYER-2018-005647

PATIENT
  Age: 37 Year
  Sex: Female

DRUGS (3)
  1. MIDOL EXTENDED RELIEF [Suspect]
     Active Substance: NAPROXEN SODIUM
     Indication: FATIGUE
     Dosage: 1 DF, ABOUT A HALF HOUR OR HOUR LATER
     Route: 048
     Dates: start: 2017
  2. MIDOL EXTENDED RELIEF [Suspect]
     Active Substance: NAPROXEN SODIUM
     Indication: ABDOMINAL DISTENSION
  3. MIDOL EXTENDED RELIEF [Suspect]
     Active Substance: NAPROXEN SODIUM
     Indication: MUSCLE SPASMS
     Dosage: 2 DF, UNK
     Route: 048
     Dates: start: 2017

REACTIONS (2)
  - Somnolence [Recovered/Resolved]
  - Extra dose administered [Unknown]

NARRATIVE: CASE EVENT DATE: 2017
